FAERS Safety Report 6805486-0 (Version None)
Quarter: 2010Q2

REPORT INFORMATION
  Report Type: 
  Country: None (occurrence: None)
  Receive Date: 20100628
  Receipt Date: 20080414
  Transmission Date: 20101027
  Serious: No
  Sender: FDA-Public Use
  Company Number: US-PFIZER INC-2007099614

PATIENT
  Sex: Female

DRUGS (1)
  1. XALATAN [Suspect]

REACTIONS (3)
  - DEPRESSED MOOD [None]
  - INTRAOCULAR PRESSURE TEST ABNORMAL [None]
  - NIGHTMARE [None]
